FAERS Safety Report 10043288 (Version 2)
Quarter: 2014Q1

REPORT INFORMATION
  Report Type: Report from Study
  Country: FR (occurrence: FR)
  Receive Date: 20140328
  Receipt Date: 20140328
  Transmission Date: 20141002
  Serious: Yes (Other)
  Sender: FDA-Public Use
  Company Number: PHHY2014FR028582

PATIENT
  Age: 33 Year
  Sex: Female

DRUGS (3)
  1. TASIGNA [Suspect]
     Indication: CHRONIC MYELOID LEUKAEMIA
     Dosage: 300 MG, BID
     Route: 048
     Dates: start: 201102, end: 20130416
  2. TASIGNA [Suspect]
     Dosage: 150MG ON MORNING 300MG ON EVENING
     Route: 048
     Dates: start: 20130417, end: 201307
  3. TASIGNA [Suspect]
     Dosage: 150MG IN MORNING 150MG IN EVENING
     Route: 048
     Dates: start: 201307

REACTIONS (1)
  - Amenorrhoea [Not Recovered/Not Resolved]
